FAERS Safety Report 25289780 (Version 1)
Quarter: 2025Q2

REPORT INFORMATION
  Report Type: Spontaneous
  Country: US (occurrence: None)
  Receive Date: 20250507
  Receipt Date: 20250507
  Transmission Date: 20250717
  Serious: Yes (Disabling)
  Sender: FDA-CTU
  Company Number: None

PATIENT
  Age: 5 Day
  Sex: Male

DRUGS (2)
  1. TPN [Suspect]
     Active Substance: AMINO ACIDS\DEXTROSE\ELECTROLYTES NOS\SOYBEAN OIL
  2. DEXTROSE [Suspect]
     Active Substance: DEXTROSE MONOHYDRATE

REACTIONS (5)
  - Blood glucose increased [None]
  - Product preparation error [None]
  - Product dispensing error [None]
  - Incorrect dose administered [None]
  - Device delivery system issue [None]

NARRATIVE: CASE EVENT DATE: 20250405
